FAERS Safety Report 14008473 (Version 5)
Quarter: 2017Q4

REPORT INFORMATION
  Report Type: Spontaneous
  Country: RO (occurrence: RO)
  Receive Date: 20170925
  Receipt Date: 20171229
  Transmission Date: 20180321
  Serious: Yes (Other)
  Sender: FDA-Public Use
  Company Number: RO-PFIZER INC-2017411151

PATIENT
  Age: 51 Year
  Sex: Male
  Weight: 72 kg

DRUGS (6)
  1. SUTENT [Suspect]
     Active Substance: SUNITINIB MALATE
     Indication: RENAL CANCER METASTATIC
     Dosage: 50 MG, CYCLIC (28 DAYS ON TREATMENT WITH 14 DAYS PAUSE)
     Dates: start: 20160920
  2. EUTHYROX [Concomitant]
     Active Substance: LEVOTHYROXINE SODIUM
     Dosage: 1.5 DF, DAILY (1 TABLET AND A HALF/DAY, MORNING)
  3. LERIDIP [Concomitant]
     Dosage: 10 MG, 1X/DAY, EVENING
  4. LAGOSA [Concomitant]
     Dosage: UNK UNK, 2X/DAY, MORNING AND EVENING
  5. KETOPROFEN. [Concomitant]
     Active Substance: KETOPROFEN
     Dosage: UNK UNK, 1X/DAY, MORNING
  6. ATACAND [Concomitant]
     Active Substance: CANDESARTAN CILEXETIL
     Dosage: 16 MG, 1X/DAY, MORNING

REACTIONS (4)
  - Anaemia [Recovering/Resolving]
  - Leukopenia [Recovering/Resolving]
  - Blood iron decreased [Recovering/Resolving]
  - Diarrhoea haemorrhagic [Recovered/Resolved]

NARRATIVE: CASE EVENT DATE: 20170827
